FAERS Safety Report 21387585 (Version 3)
Quarter: 2023Q1

REPORT INFORMATION
  Report Type: Spontaneous
  Country: JP (occurrence: JP)
  Receive Date: 20220928
  Receipt Date: 20230209
  Transmission Date: 20230417
  Serious: Yes (Disabling, Other)
  Sender: FDA-Public Use
  Company Number: JP-BRISTOL-MYERS SQUIBB COMPANY-2022-113115

PATIENT
  Age: 81 Year
  Sex: Male
  Weight: 53.5 kg

DRUGS (4)
  1. ABRAXANE [Suspect]
     Active Substance: PACLITAXEL
     Indication: Metastatic gastric cancer
     Dosage: FOR APPROXIMATELY 6 MONTHS
     Route: 041
     Dates: start: 202202
  2. ABRAXANE [Suspect]
     Active Substance: PACLITAXEL
     Dosage: DETAILS NOT REPORTED, 12 DOSING DAYS DAILY DOSE: 150 MILLIGRAM(S)
     Route: 041
     Dates: start: 20220502, end: 20220829
  3. CYRAMZA [Suspect]
     Active Substance: RAMUCIRUMAB
     Indication: Metastatic gastric cancer
     Dosage: DETAILS NOT REPORTED, 8 DOSING DAYS?DAILY DOSE: 420 MILLIGRAM(S)
     Route: 041
     Dates: start: 20220502, end: 20220822
  4. CYRAMZA [Suspect]
     Active Substance: RAMUCIRUMAB
     Route: 041
     Dates: start: 202202

REACTIONS (2)
  - Macular oedema [Recovered/Resolved]
  - Off label use [Unknown]

NARRATIVE: CASE EVENT DATE: 20220826
